FAERS Safety Report 6070684-3 (Version None)
Quarter: 2009Q1

REPORT INFORMATION
  Report Type: 
  Country: None (occurrence: None)
  Receive Date: 20090209
  Receipt Date: 20090128
  Transmission Date: 20090719
  Serious: Yes (Hospitalization, Other)
  Sender: FDA-Public Use
  Company Number: NO-PFIZER INC-2009163286

PATIENT

DRUGS (1)
  1. DETRUSITOL SR [Suspect]
     Indication: ENURESIS
     Dosage: 4 MG, 1X/DAY
     Route: 048
     Dates: start: 20080916, end: 20081011

REACTIONS (1)
  - PSYCHOTIC DISORDER [None]
